FAERS Safety Report 5964133-0 (Version None)
Quarter: 2008Q4

REPORT INFORMATION
  Report Type: 
  Country: None (occurrence: None)
  Receive Date: 20081124
  Receipt Date: 20081113
  Transmission Date: 20090506
  Serious: No
  Sender: FDA-Public Use
  Company Number: US-B.I. PHARMACEUTICALS,INC./RIDGEFIELD-2008-BP-17285BP

PATIENT
  Sex: Female

DRUGS (6)
  1. SPIRIVA [Suspect]
     Indication: ASTHMA
     Dosage: 18MCG
     Route: 055
     Dates: start: 20081001
  2. PAXIL [Concomitant]
     Indication: ANXIETY
  3. AVAPRO [Concomitant]
  4. DIAZIDE [Concomitant]
  5. SOMETHING FOR SLEEP [Concomitant]
  6. RESCUE INHALER [Concomitant]

REACTIONS (2)
  - SLEEP DISORDER [None]
  - SLEEP TERROR [None]
